FAERS Safety Report 14460629 (Version 1)
Quarter: 2018Q1

REPORT INFORMATION
  Report Type: Spontaneous
  Country: US (occurrence: US)
  Receive Date: 20180130
  Receipt Date: 20180130
  Transmission Date: 20180509
  Serious: Yes (Death)
  Sender: FDA-Public Use
  Company Number: None

PATIENT
  Age: 6 Year
  Sex: Female

DRUGS (3)
  1. VIGABATRIN 500MG FWD [Suspect]
     Active Substance: VIGABATRIN
     Indication: EPILEPSY
     Route: 048
     Dates: start: 201712, end: 201712
  2. KEPPRA [Concomitant]
     Active Substance: LEVETIRACETAM
  3. PHENOBARB [Concomitant]
     Active Substance: PHENOBARBITAL SODIUM

REACTIONS (1)
  - Death [None]
